FAERS Safety Report 11204015 (Version 2)
Quarter: 2015Q3

REPORT INFORMATION
  Report Type: Report from Study
  Country: MX (occurrence: MX)
  Receive Date: 20150619
  Receipt Date: 20150707
  Transmission Date: 20151125
  Serious: Yes (Other)
  Sender: FDA-Public Use
  Company Number: PHHY2015MX071217

PATIENT
  Sex: Female

DRUGS (5)
  1. OMEPRAZOLE. [Concomitant]
     Active Substance: OMEPRAZOLE
     Indication: GASTRITIS
     Dosage: 1 DF, IN THE MORNING, 8 YEARS AGO
     Route: 048
  2. NOVOVARTALON [Concomitant]
     Indication: OSTEOPOROSIS
     Dosage: 1 PACKER, EVERY 3RD DAY, 8 YEARS AGO
     Route: 048
  3. CO-DIOVAN [Suspect]
     Active Substance: HYDROCHLOROTHIAZIDE\VALSARTAN
     Dosage: 0.5 DF (160/12.5), QD
     Route: 065
  4. CO-DIOVAN [Suspect]
     Active Substance: HYDROCHLOROTHIAZIDE\VALSARTAN
     Indication: HYPERTENSION
     Dosage: 1 DF (160/12.5), IN THE MORNING
     Route: 048
  5. CITOX [Concomitant]
     Indication: ANTIDEPRESSANT THERAPY
     Dosage: 0.5 DF, IN THE MORNING, 8 YEARS AGO
     Route: 048

REACTIONS (2)
  - Dementia Alzheimer^s type [Not Recovered/Not Resolved]
  - Off label use [Not Recovered/Not Resolved]
